FAERS Safety Report 13055880 (Version 1)
Quarter: 2016Q4

REPORT INFORMATION
  Report Type: Spontaneous
  Country: ES (occurrence: ES)
  Receive Date: 20161222
  Receipt Date: 20161222
  Transmission Date: 20170207
  Serious: Yes (Other)
  Sender: FDA-Public Use
  Company Number: ES-BIOVITRUM-2016ES1129

PATIENT
  Age: 9 Year
  Sex: Female
  Weight: 38 kg

DRUGS (1)
  1. KINERET [Suspect]
     Active Substance: ANAKINRA
     Indication: JUVENILE IDIOPATHIC ARTHRITIS
     Route: 058
     Dates: start: 20160815, end: 20161124

REACTIONS (3)
  - Tremor [Recovered/Resolved]
  - Chest pain [Recovered/Resolved]
  - Headache [Recovered/Resolved]

NARRATIVE: CASE EVENT DATE: 20161027
